FAERS Safety Report 15116502 (Version 1)
Quarter: 2018Q3

REPORT INFORMATION
  Report Type: Spontaneous
  Country: CN (occurrence: CN)
  Receive Date: 20180706
  Receipt Date: 20180706
  Transmission Date: 20181010
  Serious: Yes (Hospitalization)
  Sender: FDA-Public Use
  Company Number: CN-BAYER-2018-122354

PATIENT
  Age: 54 Year
  Sex: Male
  Weight: 70 kg

DRUGS (4)
  1. CLOPIDOGREL BISULFATE. [Suspect]
     Active Substance: CLOPIDOGREL BISULFATE
     Indication: PLATELET DISORDER
     Dosage: 75 MG, QD
     Route: 048
     Dates: start: 20180421, end: 20180426
  2. CLOPIDOGREL BISULFATE. [Suspect]
     Active Substance: CLOPIDOGREL BISULFATE
     Indication: PLATELET DISORDER
     Dosage: 75 MG, QD
     Route: 048
     Dates: start: 20180430
  3. HEPARIN CALCIUM [Suspect]
     Active Substance: HEPARIN CALCIUM
     Indication: COAGULOPATHY
     Dosage: 5000 U, BID
     Route: 058
     Dates: start: 20180422, end: 20180426
  4. BAYASPIRIN 100 MG [Suspect]
     Active Substance: ASPIRIN
     Indication: PLATELET DISORDER
     Dosage: 100 MG, QD
     Route: 048
     Dates: start: 20180421, end: 20180426

REACTIONS (5)
  - Cold sweat [Recovering/Resolving]
  - Gastrointestinal haemorrhage [Recovering/Resolving]
  - Haemoglobin decreased [Recovering/Resolving]
  - Dizziness [Recovering/Resolving]
  - Blood pressure decreased [Recovering/Resolving]

NARRATIVE: CASE EVENT DATE: 20180426
